FAERS Safety Report 5071673-8 (Version None)
Quarter: 2006Q3

REPORT INFORMATION
  Report Type: 
  Country: None (occurrence: None)
  Receive Date: 20060801
  Receipt Date: 20060717
  Transmission Date: 20061208
  Serious: Yes (Hospitalization)
  Sender: FDA-Public Use
  Company Number: 2006001435

PATIENT
  Age: 70 Year
  Sex: Female

DRUGS (16)
  1. ERLOTINIB (TABLET) [Suspect]
     Indication: NON-SMALL CELL LUNG CANCER
     Dosage: 150 MG (QD), ORAL
     Route: 048
     Dates: start: 20060119, end: 20060209
  2. ERLOTINIB (TABLET) [Suspect]
     Indication: NON-SMALL CELL LUNG CANCER
     Dosage: 150 MG (QD), ORAL
     Route: 048
     Dates: start: 20060302, end: 20060413
  3. BEVACIZUMAB (INJECTION FOR INFUSION) [Suspect]
     Indication: NON-SMALL CELL LUNG CANCER
     Dosage: 750 MG (Q3W), INTRAVENOUS
     Route: 042
     Dates: start: 20060119, end: 20060209
  4. BEVACIZUMAB (INJECTION FOR INFUSION) [Suspect]
     Indication: NON-SMALL CELL LUNG CANCER
     Dosage: 750 MG (Q3W), INTRAVENOUS
     Route: 042
     Dates: start: 20060302, end: 20060323
  5. CISPLATIN [Suspect]
     Indication: NON-SMALL CELL LUNG CANCER
     Dosage: 80 MG/M^2 (Q3W), INTRAVENOUS
     Route: 042
     Dates: start: 20060420
  6. GEMCITABINE [Suspect]
     Indication: NON-SMALL CELL LUNG CANCER
     Dosage: 1250 MG/M^2 (Q3W), INTRAVENOUS
     Route: 042
     Dates: start: 20060420
  7. TRANSIPEG(MACROGOL) [Concomitant]
  8. RAMIPRIL [Concomitant]
  9. FENTANYL [Concomitant]
  10. ESOMEPRAZOLE (ESOMEPRAZOLE) [Concomitant]
  11. PROPRANOLOL [Concomitant]
  12. IBUPROFEN [Concomitant]
  13. ZOLPIDEM TARTRATE [Concomitant]
  14. NITRODERM [Concomitant]
  15. METOCLOPRAMIDE [Concomitant]
  16. XYTRAL [Concomitant]

REACTIONS (11)
  - ABDOMINAL PAIN [None]
  - BLOOD PRESSURE INCREASED [None]
  - CHEST PAIN [None]
  - CONJUNCTIVITIS [None]
  - CONVULSION [None]
  - DISORIENTATION [None]
  - GRAND MAL CONVULSION [None]
  - HEADACHE [None]
  - HYPOMAGNESAEMIA [None]
  - URINARY TRACT INFECTION [None]
  - VISION BLURRED [None]
